FAERS Safety Report 23762003 (Version 2)
Quarter: 2024Q2

REPORT INFORMATION
  Report Type: Report from Study
  Country: GB (occurrence: None)
  Receive Date: 20240419
  Receipt Date: 20240423
  Transmission Date: 20240716
  Serious: Yes (Death, Hospitalization, Other)
  Sender: FDA-Public Use
  Company Number: GB-SAMSUNG BIOEPIS-SB-2024-09741

PATIENT
  Age: 81 Year
  Sex: Female
  Weight: 70.2 kg

DRUGS (3)
  1. METHOTREXATE [Suspect]
     Active Substance: METHOTREXATE
     Indication: Product used for unknown indication
     Dates: start: 20211115
  2. ETANERCEPT [Suspect]
     Active Substance: ETANERCEPT
     Indication: Rheumatoid arthritis
     Dates: start: 20231101
  3. UNSPECIFIED INGREDIENT [Concomitant]
     Active Substance: UNSPECIFIED INGREDIENT

REACTIONS (13)
  - Respiratory tract infection [Fatal]
  - Hypotension [Fatal]
  - Urinary tract infection [Fatal]
  - Constipation [Fatal]
  - Respiratory acidosis [Fatal]
  - Metabolic acidosis [Fatal]
  - Lactic acidosis [Fatal]
  - Abdominal discomfort [Fatal]
  - Dyspnoea [Fatal]
  - Decreased appetite [Fatal]
  - Death [Fatal]
  - Oxygen saturation decreased [Fatal]
  - Device related infection [Fatal]

NARRATIVE: CASE EVENT DATE: 20240129
